FAERS Safety Report 23343052 (Version 1)
Quarter: 2023Q4

REPORT INFORMATION
  Report Type: Report from Study
  Country: US (occurrence: US)
  Receive Date: 20231227
  Receipt Date: 20231227
  Transmission Date: 20240109
  Serious: Yes (Hospitalization)
  Sender: FDA-Public Use
  Company Number: US-Eisai-EC-2023-153078

PATIENT
  Age: 62 Year
  Sex: Male

DRUGS (2)
  1. LENVIMA [Suspect]
     Active Substance: LENVATINIB
     Indication: Hepatocellular carcinoma
     Route: 048
     Dates: start: 202311
  2. VEMLIDY [Concomitant]
     Active Substance: TENOFOVIR ALAFENAMIDE FUMARATE
     Indication: Product used for unknown indication
     Dosage: DOSE AND FREQUENCY UNKNOWN

REACTIONS (11)
  - Dehydration [Recovered/Resolved]
  - Dizziness [Unknown]
  - Fatigue [Unknown]
  - Dry mouth [Unknown]
  - Diarrhoea [Unknown]
  - Oral pain [Unknown]
  - Stomatitis [Unknown]
  - Myalgia [Unknown]
  - Arthralgia [Unknown]
  - Dysphonia [Unknown]
  - Weight decreased [Unknown]

NARRATIVE: CASE EVENT DATE: 20231101
